FAERS Safety Report 6526024-6 (Version None)
Quarter: 2010Q1

REPORT INFORMATION
  Report Type: 
  Country: None (occurrence: None)
  Receive Date: 20100104
  Receipt Date: 20091222
  Transmission Date: 20100710
  Serious: Yes (Other)
  Sender: FDA-Public Use
  Company Number: US-JNJCH-2009033069

PATIENT
  Age: 25 Year
  Sex: Male
  Weight: 113.4 kg

DRUGS (1)
  1. VISINE EYE DROPS [Suspect]
     Indication: DRUG USE FOR UNKNOWN INDICATION
     Dosage: TEXT:ONCE
     Route: 047
     Dates: start: 20091222, end: 20091222

REACTIONS (2)
  - EYE IRRITATION [None]
  - PRODUCT QUALITY ISSUE [None]
